FAERS Safety Report 4956516-2 (Version None)
Quarter: 2006Q1

REPORT INFORMATION
  Report Type: 
  Country: None (occurrence: None)
  Receive Date: 20060329
  Receipt Date: 20050823
  Transmission Date: 20060701
  Serious: Yes (Hospitalization, Other)
  Sender: FDA-Public Use
  Company Number: US-MERCK-0508USA03884

PATIENT
  Age: 51 Year
  Sex: Female
  Weight: 91 kg

DRUGS (13)
  1. VIOXX [Suspect]
     Route: 048
     Dates: start: 20030101, end: 20040106
  2. VIOXX [Suspect]
     Route: 048
     Dates: start: 20010101
  3. PAXIL [Concomitant]
     Route: 065
  4. CLONOPIN [Concomitant]
     Route: 065
  5. RISPERDAL [Concomitant]
     Route: 065
  6. VICODIN [Concomitant]
     Route: 065
  7. ASPIRIN [Concomitant]
     Route: 065
  8. PLAVIX [Concomitant]
     Route: 065
  9. NEXIUM [Concomitant]
     Route: 065
  10. ATENOLOL [Concomitant]
     Route: 065
  11. AMBIEN [Concomitant]
     Route: 065
  12. MECLIZINE [Concomitant]
     Route: 065
  13. LASIX [Concomitant]
     Route: 065

REACTIONS (14)
  - ANGINA UNSTABLE [None]
  - ASTHMA [None]
  - CHEST PAIN [None]
  - CHRONIC OBSTRUCTIVE PULMONARY DISEASE [None]
  - CORONARY ARTERY DISEASE [None]
  - DEPRESSION [None]
  - DYSLIPIDAEMIA [None]
  - DYSPNOEA [None]
  - EPISTAXIS [None]
  - GASTROOESOPHAGEAL REFLUX DISEASE [None]
  - HYPERTENSION [None]
  - MYOCARDIAL INFARCTION [None]
  - MYOCARDIAL ISCHAEMIA [None]
  - TACHYCARDIA [None]
